FAERS Safety Report 18749426 (Version 1)
Quarter: 2021Q1

REPORT INFORMATION
  Report Type: Spontaneous
  Country: US (occurrence: US)
  Receive Date: 20210116
  Receipt Date: 20210116
  Transmission Date: 20210419
  Serious: Yes (Other)
  Sender: FDA-Public Use
  Company Number: US-TAKEDA-2021TUS002386

PATIENT

DRUGS (37)
  1. LEVAQUIN [Concomitant]
     Active Substance: LEVOFLOXACIN
  2. MYLANTA [CALCIUM CARBONATE;MAGNESIUM HYDROXIDE] [Concomitant]
  3. MELOXCAM [Concomitant]
     Active Substance: MELOXICAM
     Dosage: UNK
  4. ACICLOVIR [Concomitant]
     Active Substance: ACYCLOVIR
     Dosage: UNK
  5. AMOXYCILLIN [AMOXICILLIN] [Concomitant]
  6. DILANTIN [Concomitant]
     Active Substance: PHENYTOIN
  7. TUMS [CALCIUM CARBONATE;MAGNESIUM CARBONATE;MAGNESIUM TRISILICATE] [Concomitant]
     Active Substance: CALCIUM CARBONATE\MAGNESIUM CARBONATE\MAGNESIUM TRISILICATE
  8. PEPTO?BISMOL [Concomitant]
     Active Substance: BISMUTH SUBSALICYLATE
  9. NEXIUM [Suspect]
     Active Substance: ESOMEPRAZOLE MAGNESIUM
     Indication: GASTROOESOPHAGEAL REFLUX DISEASE
     Dosage: UNK
     Route: 048
  10. PRILOSEC [Suspect]
     Active Substance: OMEPRAZOLE MAGNESIUM
     Indication: GASTROOESOPHAGEAL REFLUX DISEASE
     Dosage: UNK
     Route: 048
  11. AMPICILLIN [Concomitant]
     Active Substance: AMPICILLIN
     Dosage: UNK
  12. ZOVIRAX [Concomitant]
     Active Substance: ACYCLOVIR
  13. KEFLEX [Concomitant]
     Active Substance: CEPHALEXIN
  14. TRIAMTERENE. [Concomitant]
     Active Substance: TRIAMTERENE
  15. ZOCOR [Concomitant]
     Active Substance: SIMVASTATIN
  16. NAPROXEN. [Concomitant]
     Active Substance: NAPROXEN
  17. LOVASTATIN. [Concomitant]
     Active Substance: LOVASTATIN
  18. FAMOTIDINE. [Concomitant]
     Active Substance: FAMOTIDINE
  19. OMEPRAZOLE. [Suspect]
     Active Substance: OMEPRAZOLE
     Indication: GASTROOESOPHAGEAL REFLUX DISEASE
     Dosage: 40 MILLIGRAM
     Route: 048
     Dates: start: 20110907, end: 20190804
  20. CELEBREX [Concomitant]
     Active Substance: CELECOXIB
     Dosage: UNK
  21. OXYMORPHONE [Concomitant]
     Active Substance: OXYMORPHONE
  22. ZITHROMAX [Concomitant]
     Active Substance: AZITHROMYCIN DIHYDRATE
  23. CILOXAN [Concomitant]
     Active Substance: CIPROFLOXACIN HYDROCHLORIDE
     Dosage: UNK
  24. MEVACOR [Concomitant]
     Active Substance: LOVASTATIN
  25. MAALOX [ALUMINIUM HYDROXIDE;MAGNESIUM HYDROXIDE] [Concomitant]
  26. QUININE [Concomitant]
     Active Substance: QUININE
  27. LOSARTAN. [Concomitant]
     Active Substance: LOSARTAN
  28. LIPITOR [Concomitant]
     Active Substance: ATORVASTATIN CALCIUM
  29. VITAMIN D [VITAMIN D NOS] [Concomitant]
     Active Substance: VITAMIN D NOS
     Dosage: UNK
  30. TRAMADOL. [Concomitant]
     Active Substance: TRAMADOL
  31. ULTRAM [PARACETAMOL;TRAMADOL HYDROCHLORIDE] [Concomitant]
     Active Substance: ACETAMINOPHEN\TRAMADOL HYDROCHLORIDE
  32. ALLOPURINOL. [Concomitant]
     Active Substance: ALLOPURINOL
  33. BENADRYL [Concomitant]
     Active Substance: DIPHENHYDRAMINE HYDROCHLORIDE
     Indication: MULTIPLE ALLERGIES
     Dosage: UNK
  34. PREVACID [Suspect]
     Active Substance: LANSOPRAZOLE
     Indication: GASTROOESOPHAGEAL REFLUX DISEASE
     Dosage: UNK
     Route: 048
  35. VIOXX [Concomitant]
     Active Substance: ROFECOXIB
     Dosage: UNK
  36. GAVISCON [CALCIUM CARBONATE;SODIUM ALGINATE;SODIUM BICARBONATE] [Concomitant]
     Active Substance: CALCIUM CARBONATE\SODIUM ALGINATE\SODIUM BICARBONATE
  37. ROLAIDS [CALCIUM CARBONATE;MAGNESIUM HYDROXIDE] [Concomitant]

REACTIONS (1)
  - Renal failure [Not Recovered/Not Resolved]
